FAERS Safety Report 6722862-5 (Version None)
Quarter: 2010Q2

REPORT INFORMATION
  Report Type: 
  Country: None (occurrence: None)
  Receive Date: 20100512
  Receipt Date: 20100512
  Transmission Date: 20101027
  Serious: Yes (Life-Threatening, Hospitalization)
  Sender: FDA-Public Use
  Company Number: None

PATIENT
  Age: 19 Year
  Sex: Male
  Weight: 76.23 kg

DRUGS (4)
  1. DIPHENHYDRAMINE HYDROCHLORIDE [Suspect]
     Indication: SUICIDE ATTEMPT
     Dosage: 19 WRAPPERS
     Route: 048
     Dates: start: 20100503, end: 20100503
  2. DEXTROMETHORPHAN,CHLORPHENIRAMINE [Suspect]
     Indication: SUICIDE ATTEMPT
     Dosage: MG ONCE PO
     Route: 048
     Dates: start: 20100504, end: 20100504
  3. APAP, DM, PHENYLEPHRINE [Suspect]
  4. VODKA [Suspect]

REACTIONS (5)
  - ALCOHOL USE [None]
  - SEDATION [None]
  - STRESS [None]
  - SUICIDE ATTEMPT [None]
  - TACHYCARDIA [None]
